FAERS Safety Report 21009249 (Version 1)
Quarter: 2022Q2

REPORT INFORMATION
  Report Type: Other
  Country: IT (occurrence: IT)
  Receive Date: 20220627
  Receipt Date: 20220627
  Transmission Date: 20220720
  Serious: Yes (Other)
  Sender: FDA-Public Use
  Company Number: IT-CELLTRION INC.-2022IT009772

PATIENT

DRUGS (2)
  1. TRASTUZUMAB [Suspect]
     Active Substance: TRASTUZUMAB
     Indication: Breast cancer
     Dosage: 8 MILLIGRAM, EVERY 1 CYCLE
     Route: 042
     Dates: start: 20220331, end: 20220331
  2. PACLITAXEL [Concomitant]
     Active Substance: PACLITAXEL
     Indication: Breast cancer
     Dosage: 80 MILLIGRAM
     Route: 042
     Dates: start: 20220331, end: 20220331

REACTIONS (4)
  - Hyperpyrexia [Recovered/Resolved]
  - Back pain [Recovered/Resolved]
  - Chills [Recovered/Resolved]
  - Underdose [Unknown]

NARRATIVE: CASE EVENT DATE: 20220331
